FAERS Safety Report 4687666-6 (Version None)
Quarter: 2005Q2

REPORT INFORMATION
  Report Type: 
  Country: None (occurrence: None)
  Receive Date: 20050610
  Receipt Date: 20030722
  Transmission Date: 20051028
  Serious: Yes (Other)
  Sender: FDA-Public Use
  Company Number: US-BOEHRINGER INGELHEIM PHARMACEUTICALS, INC.-2003-BP-04885BP

PATIENT
  Sex: Male
  Weight: 2.85 kg

DRUGS (11)
  1. VIRAMUNE [Suspect]
     Indication: HIV INFECTION
     Route: 015
     Dates: start: 20030116, end: 20030705
  2. AZT [Suspect]
     Indication: HIV INFECTION
     Route: 015
     Dates: start: 20030116, end: 20030705
  3. 3TC [Concomitant]
     Indication: HIV INFECTION
     Route: 015
     Dates: start: 20030116, end: 20030705
  4. EPIDURAL ANESTHESIA [Concomitant]
     Route: 015
     Dates: start: 20030701, end: 20030701
  5. DEMEROL [Concomitant]
     Route: 015
     Dates: start: 20030701, end: 20030701
  6. PHENERGAN [Concomitant]
     Route: 015
     Dates: start: 20030701, end: 20030701
  7. ANCEF [Concomitant]
     Route: 015
     Dates: start: 20030701, end: 20030701
  8. TERBUTALINE [Concomitant]
     Route: 015
     Dates: start: 20030701, end: 20030701
  9. DEXTROSE 5% LACTATED RINGERS [Concomitant]
     Route: 015
     Dates: start: 20030701, end: 20030701
  10. PITOCIN [Concomitant]
     Route: 015
     Dates: start: 20030701, end: 20030701
  11. AZT [Concomitant]
     Route: 048
     Dates: start: 20030705

REACTIONS (4)
  - BLOOD CREATINE PHOSPHOKINASE INCREASED [None]
  - DRUG EXPOSURE DURING PREGNANCY [None]
  - EOSINOPHILIA [None]
  - NEONATAL DISORDER [None]
